FAERS Safety Report 9660148 (Version 1)
Quarter: 2013Q4

REPORT INFORMATION
  Report Type: Spontaneous
  Country: IE (occurrence: IE)
  Receive Date: 20131031
  Receipt Date: 20131031
  Transmission Date: 20140711
  Serious: Yes (Other)
  Sender: FDA-Public Use
  Company Number: IE-JNJFOC-20131016790

PATIENT
  Sex: Male

DRUGS (5)
  1. INVEGA [Suspect]
     Indication: SCHIZOPHRENIA
     Route: 048
  2. WARFARIN [Suspect]
     Indication: PRODUCT USED FOR UNKNOWN INDICATION
     Route: 065
  3. WARFARIN [Suspect]
     Indication: PRODUCT USED FOR UNKNOWN INDICATION
     Route: 065
     Dates: start: 20130920
  4. ARIPIPRAZOLE [Concomitant]
     Route: 065
  5. VALPROATE SODIUM [Concomitant]
     Route: 065

REACTIONS (3)
  - Atrial fibrillation [Unknown]
  - International normalised ratio fluctuation [Unknown]
  - Drug ineffective [Unknown]
